FAERS Safety Report 6277444-9 (Version None)
Quarter: 2009Q3

REPORT INFORMATION
  Report Type: 
  Country: None (occurrence: None)
  Receive Date: 20090722
  Receipt Date: 20070321
  Transmission Date: 20100115
  Serious: Yes (Hospitalization)
  Sender: FDA-Public Use
  Company Number: GB-PFIZER INC-2007026603

PATIENT

DRUGS (4)
  1. PHENYTOIN SODIUM CAP [Suspect]
     Indication: EPILEPSY
     Route: 048
  2. VALPROATE SODIUM [Concomitant]
  3. BACLOFEN [Concomitant]
  4. CITALOPRAM HYDROBROMIDE [Concomitant]
     Dosage: AT NIGHT

REACTIONS (2)
  - GENERAL PHYSICAL HEALTH DETERIORATION [None]
  - THERAPEUTIC AGENT TOXICITY [None]
